FAERS Safety Report 13255518 (Version 6)
Quarter: 2020Q2

REPORT INFORMATION
  Report Type: Report from Study
  Country: BR (occurrence: BR)
  Receive Date: 20170221
  Receipt Date: 20200506
  Transmission Date: 20200713
  Serious: Yes (Hospitalization, Other)
  Sender: FDA-Public Use
  Company Number: PHHY2017BR021418

PATIENT
  Age: 48 Year
  Sex: Male
  Weight: 120 kg

DRUGS (10)
  1. COSENTYX [Suspect]
     Active Substance: SECUKINUMAB
     Dosage: 300 MG, QMO
     Route: 058
     Dates: start: 20170201
  2. COSENTYX [Suspect]
     Active Substance: SECUKINUMAB
     Indication: PSORIATIC ARTHROPATHY
     Dosage: 300 MG, QW
     Route: 058
     Dates: start: 20170104
  3. COSENTYX [Suspect]
     Active Substance: SECUKINUMAB
     Dosage: 300 MG, QW
     Route: 058
     Dates: start: 20170118
  4. COSENTYX [Suspect]
     Active Substance: SECUKINUMAB
     Dosage: UNK
     Route: 058
     Dates: start: 20170529
  5. COSENTYX [Suspect]
     Active Substance: SECUKINUMAB
     Dosage: 300 MG, QMO
     Route: 058
  6. COSENTYX [Suspect]
     Active Substance: SECUKINUMAB
     Dosage: UNK
     Route: 065
     Dates: start: 20181205
  7. HUMIRA [Suspect]
     Active Substance: ADALIMUMAB
     Indication: PRODUCT USED FOR UNKNOWN INDICATION
     Route: 065
  8. COSENTYX [Suspect]
     Active Substance: SECUKINUMAB
     Dosage: 300 MG, QMO
     Route: 058
     Dates: start: 20170328
  9. COSENTYX [Suspect]
     Active Substance: SECUKINUMAB
     Indication: PSORIASIS
     Dosage: 300 MG, QW
     Route: 058
     Dates: start: 20170111
  10. COSENTYX [Suspect]
     Active Substance: SECUKINUMAB
     Dosage: 300 MG, QW
     Route: 058
     Dates: start: 20170125

REACTIONS (32)
  - Anaesthetic complication [Unknown]
  - Spinal cord injury [Unknown]
  - Stress [Unknown]
  - Agitation [Unknown]
  - Mobility decreased [Unknown]
  - Skin infection [Recovering/Resolving]
  - Erythema [Unknown]
  - Blister [Recovered/Resolved]
  - Skin lesion [Not Recovered/Not Resolved]
  - Pain [Unknown]
  - Spinal pain [Unknown]
  - Drug ineffective [Not Recovered/Not Resolved]
  - Gait inability [Unknown]
  - Blood pressure increased [Recovered/Resolved]
  - Head discomfort [Not Recovered/Not Resolved]
  - Sunburn [Recovering/Resolving]
  - Psoriasis [Recovered/Resolved]
  - Weight increased [Not Recovered/Not Resolved]
  - Skin haemorrhage [Not Recovered/Not Resolved]
  - Skin wound [Not Recovered/Not Resolved]
  - Psoriatic arthropathy [Not Recovered/Not Resolved]
  - Skin exfoliation [Not Recovered/Not Resolved]
  - Hypokinesia [Not Recovered/Not Resolved]
  - Hypertension [Not Recovered/Not Resolved]
  - Arthritis [Recovering/Resolving]
  - Mood altered [Unknown]
  - Muscle rigidity [Unknown]
  - Skin atrophy [Not Recovered/Not Resolved]
  - Metabolic syndrome [Unknown]
  - Spinal cord herniation [Unknown]
  - Speech disorder [Unknown]
  - Inappropriate schedule of product administration [Unknown]

NARRATIVE: CASE EVENT DATE: 20170429
